FAERS Safety Report 8366752-3 (Version None)
Quarter: 2012Q2

REPORT INFORMATION
  Report Type: 
  Country: None (occurrence: None)
  Receive Date: 20120516
  Receipt Date: 20120516
  Transmission Date: 20120825
  Serious: Yes (Other)
  Sender: FDA-Public Use
  Company Number: None

PATIENT
  Age: 35 Year
  Sex: Female
  Weight: 148 kg

DRUGS (4)
  1. HYDROCHLOROTHIAZIDE [Concomitant]
  2. AMLODIPINE BESYLATE [Concomitant]
  3. LABETALOL HCL [Concomitant]
  4. IOPAMIDOL [Suspect]
     Dosage: 130 ML IV ONE TIME DOSE
     Route: 042
     Dates: start: 20120109

REACTIONS (3)
  - CONTRAST MEDIA ALLERGY [None]
  - BLOOD PRESSURE INCREASED [None]
  - HEART RATE INCREASED [None]
